FAERS Safety Report 5290407-5 (Version None)
Quarter: 2007Q2

REPORT INFORMATION
  Report Type: 
  Country: None (occurrence: None)
  Receive Date: 20070402
  Receipt Date: 20070320
  Transmission Date: 20071010
  Serious: Yes (Hospitalization)
  Sender: FDA-Public Use
  Company Number: E2090-00191-SPO-JP

PATIENT
  Age: 65 Year
  Sex: Male

DRUGS (5)
  1. EXCEGRAN (ZONISAMIDE) [Suspect]
     Indication: EPILEPSY
     Dosage: ORAL
     Route: 048
     Dates: start: 20020424, end: 20070214
  2. EXCEGRAN (ZONISAMIDE) [Suspect]
     Indication: EPILEPSY
     Dosage: ORAL
     Route: 048
     Dates: start: 20000101
  3. TSUMURA DAIOKANZOTO (TSUMURA DAISAIKOTOU) [Concomitant]
  4. PURSENNID (SENNA LEAF) [Concomitant]
  5. BLOSTARM M (FAMOTIDINE) [Concomitant]

REACTIONS (6)
  - ANURIA [None]
  - CALCULUS URETERIC [None]
  - CONVULSION [None]
  - HYDRONEPHROSIS [None]
  - NEPHROLITHIASIS [None]
  - PYREXIA [None]
